FAERS Safety Report 18510907 (Version 2)
Quarter: 2020Q4

REPORT INFORMATION
  Report Type: Report from Study
  Country: IT (occurrence: IT)
  Receive Date: 20201117
  Receipt Date: 20201123
  Transmission Date: 20210114
  Serious: Yes (Hospitalization)
  Sender: FDA-Public Use
  Company Number: IT-ROCHE-2710482

PATIENT
  Age: 72 Year
  Sex: Female
  Weight: 59 kg

DRUGS (2)
  1. MTIG 7192A [Suspect]
     Active Substance: TIRAGOLUMAB
     Indication: NON-SMALL CELL LUNG CANCER
     Dosage: ON SAME DAY, SHE RECEIVED MOST RECENT DOSE OF IV MTIG 7192A PRIOR TO ADVERSE EVENT (AE) ONSET.
     Route: 042
     Dates: start: 20200923
  2. ATEZOLIZUMAB. [Suspect]
     Active Substance: ATEZOLIZUMAB
     Indication: NON-SMALL CELL LUNG CANCER
     Dosage: ON SAME DAY, SHE RECEIVED MOST RECENT DOSE OF IV ATEZOLIZUMAB 1200 MG PRIOR TO AE ONSET.
     Route: 041
     Dates: start: 20200923

REACTIONS (1)
  - General physical health deterioration [Unknown]

NARRATIVE: CASE EVENT DATE: 20201008
